FAERS Safety Report 18380173 (Version 2)
Quarter: 2020Q4

REPORT INFORMATION
  Report Type: Report from Study
  Country: US (occurrence: US)
  Receive Date: 20201013
  Receipt Date: 20201020
  Transmission Date: 20210114
  Serious: Yes (Death, Hospitalization, Other)
  Sender: FDA-Public Use
  Company Number: US-BRISTOL-MYERS SQUIBB COMPANY-BMS-2020-073752

PATIENT
  Age: 69 Year
  Sex: Female
  Weight: 67.2 kg

DRUGS (2)
  1. LINRODOSTAT MESYLATE [Suspect]
     Active Substance: LINRODOSTAT MESYLATE
     Indication: GLIOBLASTOMA
     Dosage: 100 MILLIGRAM, QD
     Route: 048
     Dates: start: 20200720
  2. NIVOLUMAB [Suspect]
     Active Substance: NIVOLUMAB
     Indication: GLIOBLASTOMA
     Dosage: 240 MILLIGRAM, QD (ONCE)
     Route: 042
     Dates: start: 20200720

REACTIONS (3)
  - Malignant neoplasm progression [Fatal]
  - Myelosuppression [Not Recovered/Not Resolved]
  - Seizure [Not Recovered/Not Resolved]

NARRATIVE: CASE EVENT DATE: 20200907
